FAERS Safety Report 13252519 (Version 1)
Quarter: 2017Q1

REPORT INFORMATION
  Report Type: Spontaneous
  Country: US (occurrence: US)
  Receive Date: 20170220
  Receipt Date: 20170220
  Transmission Date: 20170428
  Serious: No
  Sender: FDA-Public Use
  Company Number: US-COLLEGIUM PHARMACEUTICAL, INC.-2016CGM00048

PATIENT
  Age: 57 Year
  Sex: Male

DRUGS (1)
  1. XTAMPZA ER [Suspect]
     Active Substance: OXYCODONE
     Dosage: UNK, 2X/DAY
     Route: 048
     Dates: start: 20161116

REACTIONS (4)
  - Pruritus [Unknown]
  - Nightmare [Unknown]
  - Sleep talking [Unknown]
  - Anxiety [Unknown]

NARRATIVE: CASE EVENT DATE: 20161118
